FAERS Safety Report 13903761 (Version 11)
Quarter: 2019Q2

REPORT INFORMATION
  Report Type: Spontaneous
  Country: US (occurrence: US)
  Receive Date: 20170824
  Receipt Date: 20190626
  Transmission Date: 20190711
  Serious: No
  Sender: FDA-Public Use
  Company Number: US-ACTELION-A-NJ2017-158282

PATIENT
  Sex: Female
  Weight: 63.49 kg

DRUGS (13)
  1. CEFDINIR. [Suspect]
     Active Substance: CEFDINIR
     Indication: RESPIRATORY TRACT INFECTION
     Dosage: 300 MG, UNK
     Route: 065
  2. UPTRAVI [Suspect]
     Active Substance: SELEXIPAG
     Dosage: 1400 MCG, EVERY AM, 1200 EVERY PM
     Route: 048
  3. TYVASO [Suspect]
     Active Substance: TREPROSTINIL
     Indication: PULMONARY ARTERIAL HYPERTENSION
     Dosage: 18-54- MCG, 3-9 BREATHS X 4 TIMES DAILY
     Route: 055
     Dates: start: 20161115
  4. TYVASO [Suspect]
     Active Substance: TREPROSTINIL
     Dosage: 54 MCG, UNK
     Route: 055
  5. TADALAFIL. [Concomitant]
     Active Substance: TADALAFIL
  6. UPTRAVI [Suspect]
     Active Substance: SELEXIPAG
     Dosage: 1200 MCG, QPM
     Route: 048
  7. UPTRAVI [Suspect]
     Active Substance: SELEXIPAG
     Indication: PULMONARY ARTERIAL HYPERTENSION
     Dosage: 1400 MCG, UNK
     Route: 048
  8. UPTRAVI [Suspect]
     Active Substance: SELEXIPAG
     Dosage: 800 MCG, BID
     Route: 048
  9. UPTRAVI [Suspect]
     Active Substance: SELEXIPAG
     Dosage: 1400 MCG, QAM
     Route: 048
  10. UPTRAVI [Suspect]
     Active Substance: SELEXIPAG
     Dosage: 1600 MCG, BID
     Route: 048
  11. TYVASO [Suspect]
     Active Substance: TREPROSTINIL
     Dosage: 12 MCG, UNK
     Route: 055
  12. ADCIRCA [Concomitant]
     Active Substance: TADALAFIL
  13. COUMADIN [Concomitant]
     Active Substance: WARFARIN SODIUM

REACTIONS (15)
  - Dizziness [Unknown]
  - Cardiac dysfunction [Unknown]
  - Abnormal dreams [Unknown]
  - Nausea [Recovering/Resolving]
  - Lung infection [Unknown]
  - Headache [Recovering/Resolving]
  - Hypotension [Unknown]
  - Product administration error [Unknown]
  - Myalgia [Unknown]
  - Vomiting [Unknown]
  - Respiratory tract infection [Unknown]
  - Pulmonary arterial pressure increased [Unknown]
  - Feeling abnormal [Unknown]
  - Pain in extremity [Unknown]
  - Retching [Unknown]
